FAERS Safety Report 8817806 (Version 2)
Quarter: 2012Q4

REPORT INFORMATION
  Report Type: 
  Country: BY (occurrence: BY)
  Receive Date: 20121001
  Receipt Date: 20121022
  Transmission Date: 20130627
  Serious: Yes (Hospitalization)
  Sender: FDA-Public Use
  Company Number: BY-SANOFI-AVENTIS-2012SA070977

PATIENT
  Age: 60 Year
  Sex: Female

DRUGS (6)
  1. ARAVA [Suspect]
     Indication: PSORIATIC ARTHRITIS
     Route: 048
     Dates: start: 20120716, end: 20120903
  2. DEXAMETHASONE [Concomitant]
     Indication: PSORIATIC ARTHRITIS
     Route: 048
  3. MEDROL [Concomitant]
     Indication: HYPERTENSION ARTERIAL
     Route: 048
  4. BISOPROLOL [Concomitant]
     Indication: HYPERTENSION ARTERIAL
     Route: 048
  5. LISINOPRIL [Concomitant]
     Indication: HYPERTENSION ARTERIAL
     Route: 048
  6. DIABETON [Concomitant]
     Indication: HYPERTENSION ARTERIAL
     Route: 048

REACTIONS (3)
  - Renal failure acute [Recovered/Resolved]
  - Dermatitis bullous [Recovered/Resolved]
  - Oedema [Recovered/Resolved]
